FAERS Safety Report 18226385 (Version 1)
Quarter: 2020Q3

REPORT INFORMATION
  Report Type: Spontaneous
  Country: US (occurrence: US)
  Receive Date: 20200902
  Receipt Date: 20200902
  Transmission Date: 20201103
  Serious: Yes (Hospitalization)
  Sender: FDA-Public Use
  Company Number: None

PATIENT
  Age: 30 Year
  Sex: Female
  Weight: 57.15 kg

DRUGS (10)
  1. TIZANIDINE. [Concomitant]
     Active Substance: TIZANIDINE
  2. STIMATE [Suspect]
     Active Substance: DESMOPRESSIN ACETATE
     Indication: HAEMOSTASIS
     Dosage: ?          QUANTITY:1 SPRAY(S);OTHER FREQUENCY:PRIOR TO PROCEDURE;OTHER ROUTE:SPRAYED INTO NOSTRIL?
     Dates: start: 20200528, end: 20200528
  3. METHOTREXATE. [Concomitant]
     Active Substance: METHOTREXATE
  4. AIMOVIG [Concomitant]
     Active Substance: ERENUMAB-AOOE
  5. TIROSINT [Concomitant]
     Active Substance: LEVOTHYROXINE SODIUM
  6. OMEGAS [Concomitant]
  7. FOLIC ACID. [Concomitant]
     Active Substance: FOLIC ACID
  8. VITAMIN D [Concomitant]
     Active Substance: VITAMIN D NOS
  9. MULTIVITAMIN [Concomitant]
     Active Substance: VITAMINS
  10. HYDROXYCHLOROQUINE [Concomitant]
     Active Substance: HYDROXYCHLOROQUINE

REACTIONS (1)
  - Hyponatraemia [None]

NARRATIVE: CASE EVENT DATE: 20200529
